FAERS Safety Report 15037056 (Version 2)
Quarter: 2019Q2

REPORT INFORMATION
  Report Type: Spontaneous
  Country: US (occurrence: US)
  Receive Date: 20180620
  Receipt Date: 20190521
  Transmission Date: 20190711
  Serious: Yes (Hospitalization, Other)
  Sender: FDA-Public Use
  Company Number: US-SA-2018SA159023

PATIENT
  Age: 60 Year
  Sex: Male

DRUGS (1)
  1. PRALUENT [Suspect]
     Active Substance: ALIROCUMAB
     Dosage: 75 MG
     Route: 058

REACTIONS (2)
  - Nephrolithiasis [Unknown]
  - Nerve compression [Unknown]

NARRATIVE: CASE EVENT DATE: 20180513
